FAERS Safety Report 25563724 (Version 1)
Quarter: 2025Q3

REPORT INFORMATION
  Report Type: Spontaneous
  Country: CA (occurrence: CA)
  Receive Date: 20250716
  Receipt Date: 20250716
  Transmission Date: 20251021
  Serious: No
  Sender: ALKEM
  Company Number: CA-ALKEM LABORATORIES LIMITED-CA-ALKEM-2025-06171

PATIENT
  Age: 50 Year
  Sex: Female

DRUGS (5)
  1. VENLAFAXINE [Suspect]
     Active Substance: VENLAFAXINE HYDROCHLORIDE
     Indication: Depression
     Route: 065
  2. VENLAFAXINE [Suspect]
     Active Substance: VENLAFAXINE HYDROCHLORIDE
     Indication: Anxiety
  3. DOMPERIDONE [Interacting]
     Active Substance: DOMPERIDONE
     Indication: Nausea
     Dosage: 10 MILLIGRAM, TID
     Route: 065
  4. DESVENLAFAXINE [Interacting]
     Active Substance: DESVENLAFAXINE
     Indication: Depression
     Route: 065
  5. DESVENLAFAXINE [Interacting]
     Active Substance: DESVENLAFAXINE
     Route: 065

REACTIONS (4)
  - Electric shock sensation [Recovered/Resolved]
  - Antidepressant discontinuation syndrome [Unknown]
  - Therapy non-responder [Unknown]
  - Drug interaction [Unknown]
